FAERS Safety Report 16320827 (Version 2)
Quarter: 2019Q2

REPORT INFORMATION
  Report Type: Spontaneous
  Country: US (occurrence: US)
  Receive Date: 20190516
  Receipt Date: 20190523
  Transmission Date: 20190711
  Serious: Yes (Other)
  Sender: FDA-Public Use
  Company Number: US-ALLERGAN-1915166US

PATIENT
  Sex: Female
  Weight: 70.3 kg

DRUGS (5)
  1. EZETIMIBE. [Concomitant]
     Active Substance: EZETIMIBE
     Indication: BLOOD CHOLESTEROL INCREASED
     Dosage: 10 MG, QD
  2. VITAMIN D/00107901/ [Concomitant]
     Indication: SUPPLEMENTATION THERAPY
     Dosage: 5000 IU, QD
  3. LINZESS [Suspect]
     Active Substance: LINACLOTIDE
     Indication: CONSTIPATION
     Dosage: ACTUAL: 290 ?G NOT EVERYDAY
     Route: 065
     Dates: start: 201901
  4. SIMVASTATIN. [Concomitant]
     Active Substance: SIMVASTATIN
     Indication: BLOOD CHOLESTEROL INCREASED
     Dosage: 20 MG HALF TAB TWICE DAILY
  5. BALSALAZIDE DISODIUM. [Concomitant]
     Active Substance: BALSALAZIDE DISODIUM
     Indication: COLITIS ULCERATIVE
     Dosage: 750 MG 6 TABS DAILY

REACTIONS (5)
  - Inappropriate schedule of product administration [Unknown]
  - Dyschromatopsia [Not Recovered/Not Resolved]
  - Macular degeneration [Not Recovered/Not Resolved]
  - Eye disorder [Unknown]
  - Diarrhoea [Not Recovered/Not Resolved]
